FAERS Safety Report 21150132 (Version 4)
Quarter: 2022Q3

REPORT INFORMATION
  Report Type: Report from Study
  Country: SI (occurrence: SI)
  Receive Date: 20220729
  Receipt Date: 20220920
  Transmission Date: 20221026
  Serious: Yes (Death, Hospitalization, Other)
  Sender: FDA-Public Use
  Company Number: SI-TAKEDA-2022TUS051218

PATIENT
  Age: 60 Year
  Sex: Female
  Weight: 80 kg

DRUGS (6)
  1. MOBOCERTINIB [Suspect]
     Active Substance: MOBOCERTINIB
     Indication: Non-small cell lung cancer
     Dosage: 160 MILLIGRAM, QD
     Route: 048
     Dates: start: 20220526, end: 20220710
  2. PANTOPRAZOLE [Concomitant]
     Active Substance: PANTOPRAZOLE
     Indication: Gastrointestinal disorder prophylaxis
     Dosage: 40 MILLIGRAM, QD
     Route: 048
     Dates: start: 20220526, end: 20220710
  3. ACETAMINOPHEN\TRAMADOL [Concomitant]
     Active Substance: ACETAMINOPHEN\TRAMADOL
     Indication: Pain
     Dosage: UNK
     Route: 048
     Dates: start: 20220526, end: 20220710
  4. DALTEPARIN [Concomitant]
     Active Substance: DALTEPARIN
     Indication: Embolism venous
     Dosage: UNK, QD
     Route: 058
     Dates: start: 20220419, end: 20220618
  5. DALTEPARIN [Concomitant]
     Active Substance: DALTEPARIN
     Dosage: UNK, QD
     Route: 058
     Dates: start: 20220618, end: 20220710
  6. ACETAMINOPHEN [Concomitant]
     Active Substance: ACETAMINOPHEN
     Indication: Pain
     Dosage: 500 MILLIGRAM
     Route: 048
     Dates: start: 20220614, end: 20220710

REACTIONS (11)
  - Vomiting [Fatal]
  - Diarrhoea [Fatal]
  - Renal failure [Fatal]
  - Dehydration [Fatal]
  - Blood creatinine increased [Fatal]
  - Gastrointestinal infection [Fatal]
  - Infection [Recovering/Resolving]
  - Anaemia [Recovered/Resolved]
  - Stomatitis [Recovered/Resolved]
  - Lymphopenia [Not Recovered/Not Resolved]
  - COVID-19 [Recovered/Resolved]

NARRATIVE: CASE EVENT DATE: 20220529
